FAERS Safety Report 8093077-6 (Version None)
Quarter: 2012Q1

REPORT INFORMATION
  Report Type: 
  Country: None (occurrence: None)
  Receive Date: 20120128
  Receipt Date: 20110928
  Transmission Date: 20120608
  Serious: No
  Sender: FDA-Public Use
  Company Number: US-ABBOTT-11P-163-0838114-00

PATIENT
  Sex: Female
  Weight: 60.836 kg

DRUGS (3)
  1. DITROPAN [Concomitant]
     Indication: HYPERTONIC BLADDER
  2. HUMIRA [Suspect]
     Indication: RHEUMATOID ARTHRITIS
     Dates: start: 20110501, end: 20110601
  3. HUMIRA [Suspect]
     Dates: start: 20110701

REACTIONS (3)
  - ORAL HERPES [None]
  - URINARY TRACT INFECTION [None]
  - SKIN IRRITATION [None]
